FAERS Safety Report 7182807-3 (Version None)
Quarter: 2010Q4

REPORT INFORMATION
  Report Type: 
  Country: None (occurrence: None)
  Receive Date: 20101222
  Receipt Date: 20101208
  Transmission Date: 20110411
  Serious: Yes (Hospitalization, Other)
  Sender: FDA-Public Use
  Company Number: IL-MYLANLABS-2010S1022859

PATIENT
  Age: 15 Year
  Sex: Male

DRUGS (1)
  1. AZITHROMYCIN [Suspect]
     Indication: PHARYNGITIS STREPTOCOCCAL
     Dosage: STANDARD, WEIGHT-ADJUSTED DOSE MONOTHERAPY
     Route: 048

REACTIONS (2)
  - COMPLEX PARTIAL SEIZURES [None]
  - HALLUCINATIONS, MIXED [None]
